FAERS Safety Report 7757360-3 (Version None)
Quarter: 2011Q3

REPORT INFORMATION
  Report Type: 
  Country: None (occurrence: None)
  Receive Date: 20110916
  Receipt Date: 20110906
  Transmission Date: 20111222
  Serious: No
  Sender: FDA-Public Use
  Company Number: US-ELI_LILLY_AND_COMPANY-US201109001975

PATIENT
  Sex: Male

DRUGS (2)
  1. PRISTIQ [Concomitant]
  2. CYMBALTA [Suspect]
     Dosage: UNK, UNKNOWN

REACTIONS (1)
  - LIVER DISORDER [None]
